FAERS Safety Report 9116036 (Version 2)
Quarter: 2013Q1

REPORT INFORMATION
  Report Type: Report from Study
  Country: JP (occurrence: JP)
  Receive Date: 20130225
  Receipt Date: 20130326
  Transmission Date: 20140127
  Serious: Yes (Death)
  Sender: FDA-Public Use
  Company Number: JP-NAPPMUNDI-GBR-2013-0013277

PATIENT
  Sex: Female
  Weight: 46 kg

DRUGS (5)
  1. BTDS PATCH [Suspect]
     Indication: ANALGESIC THERAPY
     Dosage: 10 MCG, Q1H
     Route: 062
     Dates: start: 20121228, end: 20130124
  2. BTDS PATCH [Suspect]
     Dosage: 5 MCG, Q1H
     Route: 062
     Dates: start: 20121221, end: 20121228
  3. CELECOX [Concomitant]
     Indication: OSTEOARTHRITIS
     Dosage: 400 MG, DAILY
     Route: 048
     Dates: start: 20121217, end: 20130124
  4. EXFORGE [Concomitant]
     Indication: HYPERTENSION
     Dosage: 85 MG, DAILY
     Route: 048
     Dates: start: 20121217, end: 20130124
  5. BAZEDOXIFENE ACETATE [Concomitant]
     Indication: OSTEOPOROSIS
     Dosage: 20 MG, DAILY
     Route: 048
     Dates: start: 20121217, end: 20130124

REACTIONS (1)
  - Death [Fatal]
